FAERS Safety Report 4914974-3 (Version None)
Quarter: 2006Q1

REPORT INFORMATION
  Report Type: 
  Country: None (occurrence: None)
  Receive Date: 20060217
  Receipt Date: 20060201
  Transmission Date: 20060701
  Serious: Yes (Hospitalization)
  Sender: FDA-Public Use
  Company Number: US-AMGEN-US167199

PATIENT
  Sex: Female

DRUGS (2)
  1. ENBREL [Suspect]
     Indication: RHEUMATOID ARTHRITIS
     Route: 065
  2. CORTICOSTEROID NOS [Concomitant]
     Route: 065

REACTIONS (3)
  - CATATONIA [None]
  - CONVULSION [None]
  - MENTAL STATUS CHANGES [None]
